FAERS Safety Report 5817650-8 (Version None)
Quarter: 2008Q3

REPORT INFORMATION
  Report Type: 
  Country: None (occurrence: None)
  Receive Date: 20080717
  Receipt Date: 20080707
  Transmission Date: 20090109
  Serious: Yes (Hospitalization, Other)
  Sender: FDA-Public Use
  Company Number: OMPQ-NO-0807L-0443

PATIENT
  Age: 61 Year

DRUGS (2)
  1. OMNIPAQUE 140 [Suspect]
     Indication: CARDIAC DISORDER
     Dosage: 300 ML, SINGLE DOSE, I.A
  2. HEPARIN [Concomitant]

REACTIONS (3)
  - BLINDNESS TRANSIENT [None]
  - DEPRESSED LEVEL OF CONSCIOUSNESS [None]
  - HEADACHE [None]
